FAERS Safety Report 14029804 (Version 1)
Quarter: 2017Q3

REPORT INFORMATION
  Report Type: Spontaneous
  Country: US (occurrence: US)
  Receive Date: 20170930
  Receipt Date: 20170930
  Transmission Date: 20171128
  Serious: No
  Sender: FDA-Public Use
  Company Number: US-SA-2017SA109313

PATIENT
  Age: 57 Year
  Sex: Female

DRUGS (9)
  1. AMOXICILLIN. [Concomitant]
     Active Substance: AMOXICILLIN
  2. TOPAMAX [Concomitant]
     Active Substance: TOPIRAMATE
  3. AUBAGIO [Suspect]
     Active Substance: TERIFLUNOMIDE
     Indication: MULTIPLE SCLEROSIS
     Route: 048
     Dates: start: 201706
  4. FLUCONAZOLE. [Concomitant]
     Active Substance: FLUCONAZOLE
  5. POLYETHYLENE GLYCOL [Concomitant]
     Active Substance: POLYETHYLENE GLYCOLS
  6. DIAZEPAM. [Concomitant]
     Active Substance: DIAZEPAM
  7. FENTANYL. [Concomitant]
     Active Substance: FENTANYL
  8. OXYCODONE HYDROCHLORIDE. [Concomitant]
     Active Substance: OXYCODONE HYDROCHLORIDE
  9. AMOXICILLIN/CLAVULANATE POTASSIUM [Concomitant]

REACTIONS (2)
  - Rash [Recovered/Resolved]
  - Rash [Unknown]

NARRATIVE: CASE EVENT DATE: 201706
